FAERS Safety Report 20371349 (Version 3)
Quarter: 2022Q1

REPORT INFORMATION
  Report Type: Spontaneous
  Country: US (occurrence: US)
  Receive Date: 20220124
  Receipt Date: 20220328
  Transmission Date: 20220423
  Serious: Yes (Other)
  Sender: FDA-Public Use
  Company Number: US-PFIZER INC-202200064124

PATIENT
  Age: 36 Year
  Sex: Female
  Weight: 68.04 kg

DRUGS (1)
  1. PREMARIN [Suspect]
     Active Substance: ESTROGENS, CONJUGATED
     Indication: Hysterectomy
     Dosage: UNK
     Dates: start: 1985, end: 1990

REACTIONS (12)
  - Hyperthyroidism [Unknown]
  - Autoimmune disorder [Unknown]
  - Drug ineffective [Unknown]
  - Headache [Unknown]
  - Illness [Unknown]
  - Vein disorder [Unknown]
  - Pain [Unknown]
  - Panic attack [Unknown]
  - Palpitations [Unknown]
  - Weight decreased [Unknown]
  - Hot flush [Unknown]
  - Hormone level abnormal [Unknown]
